FAERS Safety Report 7363689-3 (Version None)
Quarter: 2011Q1

REPORT INFORMATION
  Report Type: 
  Country: None (occurrence: None)
  Receive Date: 20110321
  Receipt Date: 20101124
  Transmission Date: 20110831
  Serious: No
  Sender: FDA-Public Use
  Company Number: A0896395A

PATIENT
  Age: 69 Year
  Sex: Male
  Weight: 81.4 kg

DRUGS (1)
  1. PROMACTA [Suspect]
     Route: 048

REACTIONS (3)
  - EOSINOPHIL COUNT INCREASED [None]
  - MONOCYTE COUNT INCREASED [None]
  - LABORATORY TEST ABNORMAL [None]
